FAERS Safety Report 9021844 (Version 1)
Quarter: 2013Q1

REPORT INFORMATION
  Report Type: Spontaneous
  Country: KR (occurrence: KR)
  Receive Date: 20130118
  Receipt Date: 20130118
  Transmission Date: 20140127
  Serious: No
  Sender: FDA-Public Use
  Company Number: KR-JNJFOC-20130105605

PATIENT
  Sex: Male

DRUGS (2)
  1. DUROGESIC D-TRANS [Suspect]
     Indication: PAIN
     Route: 062
     Dates: start: 201211
  2. DUROGESIC D-TRANS [Suspect]
     Indication: PAIN
     Route: 062

REACTIONS (5)
  - Nausea [Not Recovered/Not Resolved]
  - Vomiting [Not Recovered/Not Resolved]
  - Dizziness [Not Recovered/Not Resolved]
  - Drug prescribing error [Unknown]
  - Drug ineffective [Unknown]
